FAERS Safety Report 8099094-4 (Version None)
Quarter: 2012Q1

REPORT INFORMATION
  Report Type: 
  Country: None (occurrence: None)
  Receive Date: 20120129
  Receipt Date: 20111025
  Transmission Date: 20120608
  Serious: No
  Sender: FDA-Public Use
  Company Number: US-ABBOTT-11P-163-0869100-00

PATIENT
  Sex: Male

DRUGS (3)
  1. HUMIRA [Suspect]
     Route: 058
     Dates: start: 20080101, end: 20110901
  2. PREDNISONE TAB [Concomitant]
     Indication: IRITIS
  3. HUMIRA [Suspect]
     Indication: ANKYLOSING SPONDYLITIS
     Dates: start: 20110901

REACTIONS (3)
  - FATIGUE [None]
  - POOR QUALITY SLEEP [None]
  - ARTHRITIS [None]
